FAERS Safety Report 13465969 (Version 1)
Quarter: 2017Q2

REPORT INFORMATION
  Report Type: Spontaneous
  Country: US (occurrence: US)
  Receive Date: 20170421
  Receipt Date: 20170421
  Transmission Date: 20170830
  Serious: No
  Sender: FDA-Public Use
  Company Number: US-ALVOGEN-2017-ALVOGEN-091489

PATIENT
  Age: 69 Year
  Sex: Female

DRUGS (2)
  1. TENORMIN [Suspect]
     Active Substance: ATENOLOL
     Indication: HYPERTENSION
     Dates: start: 20170202
  2. XANAX [Concomitant]
     Active Substance: ALPRAZOLAM
     Indication: ANXIETY

REACTIONS (6)
  - Chills [Unknown]
  - Tremor [Unknown]
  - Feeling hot [Unknown]
  - Malaise [Unknown]
  - Nausea [Unknown]
  - Product substitution issue [Unknown]

NARRATIVE: CASE EVENT DATE: 20170202
